FAERS Safety Report 8545691-9 (Version None)
Quarter: 2012Q3

REPORT INFORMATION
  Report Type: 
  Country: None (occurrence: None)
  Receive Date: 20120727
  Receipt Date: 20120724
  Transmission Date: 20120928
  Serious: Yes (Death, Hospitalization)
  Sender: FDA-Public Use
  Company Number: US-CELGENEUS-163-21880-12070355

PATIENT
  Sex: Male

DRUGS (6)
  1. WARFARIN SODIUM [Concomitant]
     Dosage: 5 MILLIGRAM
     Route: 048
     Dates: start: 20120214, end: 20120612
  2. REVLIMID [Suspect]
     Indication: MULTIPLE MYELOMA
     Dosage: 11.25 MILLIGRAM
     Route: 048
     Dates: start: 20120320, end: 20120612
  3. DIGOXIN [Concomitant]
     Dosage: .125 MILLIGRAM
     Route: 048
     Dates: start: 20120308, end: 20120612
  4. DILTIAZEM [Concomitant]
     Dosage: 120 MILLIGRAM
     Route: 048
     Dates: start: 20120306, end: 20120612
  5. DONEPEZIL HCL [Concomitant]
     Indication: DEMENTIA
     Dosage: 10 MILLIGRAM
     Route: 048
     Dates: start: 20110324, end: 20120218
  6. LASIX [Concomitant]
     Indication: FLUID OVERLOAD
     Dosage: 20 MILLIGRAM
     Route: 048
     Dates: start: 20120608, end: 20120612

REACTIONS (3)
  - RENAL FAILURE [None]
  - DEHYDRATION [None]
  - INTESTINAL PERFORATION [None]
